FAERS Safety Report 15955768 (Version 1)
Quarter: 2019Q1

REPORT INFORMATION
  Report Type: Spontaneous
  Country: US (occurrence: US)
  Receive Date: 20190122
  Receipt Date: 20190122
  Transmission Date: 20190417
  Serious: No
  Sender: FDA-Public Use
  Company Number: None

PATIENT
  Age: 81 Year
  Sex: Male

DRUGS (1)
  1. REPATHA [Suspect]
     Active Substance: EVOLOCUMAB
     Dates: start: 201812, end: 201901

REACTIONS (3)
  - Rhinorrhoea [None]
  - Muscle spasms [None]
  - Mobility decreased [None]

NARRATIVE: CASE EVENT DATE: 20190113
